FAERS Safety Report 16057167 (Version 1)
Quarter: 2020Q3

REPORT INFORMATION
  Report Type: Spontaneous
  Country: PT (occurrence: PT)
  Receive Date: 20190311
  Receipt Date: 20190311
  Transmission Date: 20201105
  Serious: Yes (Disabling)
  Sender: FDA-Public Use
  Company Number: IND-PT-009507513-1903PRT001907

PATIENT
  Age: 41 Year
  Sex: Female
  Weight: 65 kg

DRUGS (5)
  1. BILAXTEN [Concomitant]
     Active Substance: BILASTINE
     Route: 048
     Dates: start: 20170424
  2. PERINDOPRIL TOSYLATE [Concomitant]
     Active Substance: PERINDOPRIL TOSYLATE
     Route: 048
     Dates: start: 20170202
  3. BISOPROLOL FUMARATE. [Concomitant]
     Active Substance: BISOPROLOL FUMARATE
     Route: 048
     Dates: start: 20171017
  4. CODIPRONT (CODEINE PHOSPHATE (+) PHENYLTOLOXAMINE CITRATE) [Concomitant]
     Route: 048
     Dates: start: 20140114
  5. ETORICOXIB. [Suspect]
     Active Substance: ETORICOXIB
     Indication: BACK PAIN
     Route: 048
     Dates: start: 20171017, end: 2017

REACTIONS (7)
  - Rash [Recovered/Resolved]
  - Rash erythematous [Recovered/Resolved]
  - Angioedema [Recovered/Resolved]
  - Eye ulcer [Recovered/Resolved]
  - Mouth ulceration [Recovered/Resolved]
  - Erythema [Recovered/Resolved]
  - Fixed eruption [Recovered/Resolved]

NARRATIVE: CASE EVENT DATE: 2017
